FAERS Safety Report 10334945 (Version 2)
Quarter: 2014Q3

REPORT INFORMATION
  Report Type: Spontaneous
  Country: US (occurrence: None)
  Receive Date: 20140721
  Receipt Date: 20140814
  Transmission Date: 20150326
  Serious: Yes (Hospitalization)
  Sender: FDA-Public Use
  Company Number: JPI-P-024014

PATIENT
  Age: 57 Year
  Sex: Female
  Weight: 102 kg

DRUGS (7)
  1. MAGNESIUM (MAGNESIUM) [Concomitant]
     Active Substance: MAGNESIUM
  2. VITAMINS D (VITAMIN D) [Concomitant]
  3. GLUCAMMON (ALL OTHER NON-THERAPEUTIC PRODUCTS) [Concomitant]
  4. LEXAPRO [Concomitant]
     Active Substance: ESCITALOPRAM OXALATE
  5. XYREM [Suspect]
     Active Substance: SODIUM OXYBATE
     Indication: NARCOLEPSY
     Route: 048
     Dates: start: 200706, end: 2008
  6. COUMADIN [Concomitant]
     Active Substance: WARFARIN SODIUM
  7. ASPIRIN (ASPIRIN) [Concomitant]
     Active Substance: ASPIRIN

REACTIONS (3)
  - Pulmonary embolism [None]
  - Skin ulcer [None]
  - Anxiety [None]

NARRATIVE: CASE EVENT DATE: 2012
